FAERS Safety Report 15435666 (Version 2)
Quarter: 2018Q4

REPORT INFORMATION
  Report Type: Report from Study
  Country: MX (occurrence: MX)
  Receive Date: 20180927
  Receipt Date: 20181003
  Transmission Date: 20190204
  Serious: Yes (Hospitalization)
  Sender: FDA-Public Use
  Company Number: MX-SA-2018SA239907

PATIENT
  Age: 71 Year
  Sex: Female
  Weight: 61 kg

DRUGS (2)
  1. TELMISARTAN. [Concomitant]
     Active Substance: TELMISARTAN
     Dosage: UNK
     Route: 048
  2. IRBESARTAN. [Suspect]
     Active Substance: IRBESARTAN
     Indication: HYPERTENSION
     Dosage: 1 DF, QD (1 ORAL TABLET OF 150 MG EVERY 24 HOURS)
     Route: 048

REACTIONS (1)
  - Abdominal pain upper [Recovered/Resolved]
